FAERS Safety Report 9513442 (Version 1)
Quarter: 2013Q3

REPORT INFORMATION
  Report Type: Spontaneous
  Country: US (occurrence: US)
  Receive Date: 20130910
  Receipt Date: 20130910
  Transmission Date: 20140515
  Serious: No
  Sender: FDA-Public Use
  Company Number: US-TARO-2012P1068470

PATIENT
  Age: 74 Year
  Sex: Male
  Weight: 104.33 kg

DRUGS (8)
  1. WARFARIN SODIUM TABLETS USP 6MG [Suspect]
     Indication: PULMONARY EMBOLISM
     Route: 048
     Dates: start: 2001, end: 2007
  2. WARFARIN SODIUM TABLETS USP 6MG [Suspect]
     Indication: PULMONARY EMBOLISM
     Route: 048
     Dates: start: 2007, end: 2012
  3. WARFARIN SODIUM TABLETS USP 6MG [Suspect]
     Indication: PULMONARY EMBOLISM
     Dates: start: 2012
  4. ASPIRIN [Concomitant]
  5. ATORVASTATIN [Concomitant]
  6. SOTOLOL [Concomitant]
     Dates: start: 201203
  7. CALCIUM CITRATE [Concomitant]
  8. AZELAIC ACID [Concomitant]
     Route: 061

REACTIONS (1)
  - International normalised ratio increased [Unknown]
